FAERS Safety Report 21920551 (Version 1)
Quarter: 2023Q1

REPORT INFORMATION
  Report Type: Spontaneous
  Country: DE (occurrence: DE)
  Receive Date: 20230127
  Receipt Date: 20230127
  Transmission Date: 20230417
  Serious: Yes (Other)
  Sender: FDA-Public Use
  Company Number: DE-TEVA-2023-DE-2848112

PATIENT
  Age: 84 Year
  Sex: Male
  Weight: 64 kg

DRUGS (5)
  1. AMIODARONE HYDROCHLORIDE [Suspect]
     Active Substance: AMIODARONE HYDROCHLORIDE
     Indication: Arrhythmia
     Dates: end: 20210421
  2. Digimerk minor [Concomitant]
     Indication: Product used for unknown indication
     Route: 065
     Dates: start: 202104
  3. TORSEMIDE [Concomitant]
     Active Substance: TORSEMIDE
     Indication: Product used for unknown indication
     Route: 065
     Dates: start: 202104
  4. JARDIANCE [Concomitant]
     Active Substance: EMPAGLIFLOZIN
     Indication: Cardiovascular disorder
     Route: 065
     Dates: start: 202210
  5. MARCUMAR [Concomitant]
     Active Substance: PHENPROCOUMON
     Indication: Cardiac valve prosthesis user
     Route: 065
     Dates: start: 1986

REACTIONS (12)
  - Polyneuropathy [Recovered/Resolved]
  - Basedow^s disease [Unknown]
  - Toxicity to various agents [Unknown]
  - Paraesthesia [Recovered/Resolved]
  - Hypoaesthesia [Recovered/Resolved]
  - Malaise [Unknown]
  - Weight decreased [Unknown]
  - Exercise tolerance decreased [Unknown]
  - Tri-iodothyronine increased [Recovering/Resolving]
  - Corneal disorder [Recovering/Resolving]
  - Thyroxine increased [Recovering/Resolving]
  - Visual acuity tests abnormal [Recovering/Resolving]
